FAERS Safety Report 7944029-5 (Version None)
Quarter: 2011Q4

REPORT INFORMATION
  Report Type: 
  Country: None (occurrence: None)
  Receive Date: 20111128
  Receipt Date: 20111121
  Transmission Date: 20120403
  Serious: Yes (Life-Threatening)
  Sender: FDA-Public Use
  Company Number: AU-ASTRAZENECA-2011SE70448

PATIENT
  Age: 79 Year
  Sex: Female

DRUGS (2)
  1. WARFARIN SODIUM [Concomitant]
  2. CRESTOR [Suspect]
     Route: 048
     Dates: start: 20111011, end: 20111020

REACTIONS (2)
  - STEVENS-JOHNSON SYNDROME [None]
  - RASH MACULO-PAPULAR [None]
